FAERS Safety Report 17398328 (Version 1)
Quarter: 2020Q1

REPORT INFORMATION
  Report Type: Spontaneous
  Country: US (occurrence: US)
  Receive Date: 20200210
  Receipt Date: 20200210
  Transmission Date: 20200409
  Serious: No
  Sender: FDA-Public Use
  Company Number: US-VAYAPHARMA-2018-US-005238

PATIENT
  Age: 17 Year
  Sex: Male

DRUGS (1)
  1. VAYARIN (NON-SPECIFIC) [Suspect]
     Active Substance: DOCONEXENT\ICOSAPENT\PHOSPHATIDYL SERINE
     Indication: ATTENTION DEFICIT/HYPERACTIVITY DISORDER
     Dosage: 1 CAP DAILY X 5 DAYS, THEN 2 CAPS DAILY
     Route: 048
     Dates: start: 201510, end: 20161108

REACTIONS (1)
  - Tic [Unknown]
